FAERS Safety Report 8271572-4 (Version None)
Quarter: 2012Q2

REPORT INFORMATION
  Report Type: 
  Country: None (occurrence: None)
  Receive Date: 20120410
  Receipt Date: 20120405
  Transmission Date: 20120825
  Serious: Yes (Hospitalization)
  Sender: FDA-Public Use
  Company Number: US-GLAXOSMITHKLINE-A0794449A

PATIENT
  Age: 52 Year
  Sex: Male
  Weight: 85.9 kg

DRUGS (8)
  1. AVANDIA [Suspect]
     Indication: DIABETES MELLITUS
     Dosage: 4MG TWICE PER DAY
     Route: 048
     Dates: start: 20010101, end: 20050901
  2. TRAZODONE HCL [Concomitant]
  3. IRBESARTAN [Concomitant]
  4. PLENDIL [Concomitant]
  5. DEPAKOTE [Concomitant]
  6. METOPROLOL TARTRATE [Concomitant]
  7. SIMVASTATIN [Concomitant]
  8. INSULIN [Concomitant]

REACTIONS (8)
  - CHEST PAIN [None]
  - PAIN [None]
  - CARDIOMEGALY [None]
  - DYSPNOEA [None]
  - ASTHENIA [None]
  - FATIGUE [None]
  - MOBILITY DECREASED [None]
  - HYPERVENTILATION [None]
